FAERS Safety Report 15557435 (Version 5)
Quarter: 2019Q4

REPORT INFORMATION
  Report Type: Report from Study
  Country: GB (occurrence: GB)
  Receive Date: 20181026
  Receipt Date: 20191017
  Transmission Date: 20200122
  Serious: Yes (Other)
  Sender: FDA-Public Use
  Company Number: PHHY2017GB204838

PATIENT
  Age: 26 Year
  Sex: Male
  Weight: 81 kg

DRUGS (1)
  1. COSENTYX [Suspect]
     Active Substance: SECUKINUMAB
     Indication: PSORIASIS
     Dosage: 300 MG, QMO
     Route: 065
     Dates: start: 201704, end: 201810

REACTIONS (5)
  - Axillary mass [Recovering/Resolving]
  - Lymph node pain [Recovering/Resolving]
  - Lymphadenopathy [Unknown]
  - T-cell lymphoma stage I [Recovering/Resolving]
  - Lymph node palpable [Recovering/Resolving]

NARRATIVE: CASE EVENT DATE: 20181026
